FAERS Safety Report 6455953-7 (Version None)
Quarter: 2009Q4

REPORT INFORMATION
  Report Type: 
  Country: None (occurrence: None)
  Receive Date: 20091119
  Receipt Date: 20091106
  Transmission Date: 20100525
  Serious: Yes (Hospitalization)
  Sender: FDA-Public Use
  Company Number: 2009AL007180

PATIENT
  Age: 48 Year

DRUGS (4)
  1. NAPROXEN [Suspect]
     Indication: BACK PAIN
     Dosage: 500 MG; BID; PO
     Route: 048
     Dates: start: 20090902, end: 20090904
  2. LEVETIRACETAM [Concomitant]
  3. SYMBICORT [Concomitant]
  4. TERBUTALINE SULFATE [Concomitant]

REACTIONS (1)
  - ERYTHEMA MULTIFORME [None]
